FAERS Safety Report 25218788 (Version 1)
Quarter: 2025Q2

REPORT INFORMATION
  Report Type: Spontaneous
  Country: RO (occurrence: RO)
  Receive Date: 20250421
  Receipt Date: 20250421
  Transmission Date: 20250716
  Serious: Yes (Other)
  Sender: ROCHE
  Company Number: RO-ROCHE-10000258723

PATIENT
  Age: 59 Year
  Sex: Male

DRUGS (2)
  1. ATEZOLIZUMAB [Suspect]
     Active Substance: ATEZOLIZUMAB
     Indication: Small cell lung cancer
     Dosage: ATEZOLIZUMAB 1200 MG+EP EVERY 3 WEEKS, 8 CYCLES(III)
     Route: 065
     Dates: start: 202206
  2. ATEZOLIZUMAB [Suspect]
     Active Substance: ATEZOLIZUMAB
     Route: 065
     Dates: start: 202211

REACTIONS (7)
  - Asthenia [Unknown]
  - Dyspnoea exertional [Unknown]
  - Bone pain [Unknown]
  - COVID-19 [Unknown]
  - Disease progression [Unknown]
  - Throat tightness [Unknown]
  - Chest discomfort [Unknown]

NARRATIVE: CASE EVENT DATE: 20221101
